FAERS Safety Report 9654420 (Version 2)
Quarter: 2013Q4

REPORT INFORMATION
  Report Type: Report from Study
  Country: CA (occurrence: CA)
  Receive Date: 20131029
  Receipt Date: 20131130
  Transmission Date: 20140711
  Serious: Yes (Hospitalization)
  Sender: FDA-Public Use
  Company Number: PHHY2013CA122154

PATIENT
  Age: 82 Year
  Sex: Female
  Weight: 60.4 kg

DRUGS (10)
  1. ACLASTA/ZOLEDRONATE [Suspect]
     Indication: OSTEOPOROSIS
     Dosage: 5 MG, UNK
     Route: 042
     Dates: start: 200909
  2. ACLASTA/ZOLEDRONATE [Suspect]
     Dosage: 5 MG, UNK
     Route: 042
     Dates: start: 2010
  3. ACLASTA/ZOLEDRONATE [Suspect]
     Dosage: 5 MG, UNK
     Route: 042
     Dates: start: 2011
  4. ACLASTA/ZOLEDRONATE [Suspect]
     Dosage: 5 MG, UNK
     Route: 042
     Dates: start: 201209
  5. VITAMIN D [Concomitant]
     Dosage: 1000 U, PER WEEK
  6. COVERSYL                                /BEL/ [Concomitant]
  7. BISOPROLOL [Concomitant]
     Dosage: UNK UKN, UNK
  8. ZOPICLONE [Concomitant]
     Dosage: UNK UKN, UNK
  9. PRADAXA [Concomitant]
     Dosage: UNK UKN, UNK
  10. PANTOPRAZOLE [Concomitant]
     Dosage: UNK UKN, UNK

REACTIONS (4)
  - Lumbar vertebral fracture [Recovering/Resolving]
  - Fall [Recovering/Resolving]
  - Syncope [Recovering/Resolving]
  - Drug ineffective [Unknown]
